FAERS Safety Report 19864436 (Version 2)
Quarter: 2021Q4

REPORT INFORMATION
  Report Type: Other
  Country: US (occurrence: US)
  Receive Date: 20210921
  Receipt Date: 20211221
  Transmission Date: 20220303
  Serious: No
  Sender: FDA-Public Use
  Company Number: US-ACORDA-ACO_169946_2021

PATIENT
  Sex: Female

DRUGS (9)
  1. INBRIJA [Suspect]
     Active Substance: LEVODOPA
     Indication: Parkinson^s disease
     Dosage: 84 MILLIGRAM, PRN, DO NOT EXCEED 5 DOSES IN 1 DAY
     Dates: start: 20201125
  2. INBRIJA [Suspect]
     Active Substance: LEVODOPA
     Indication: On and off phenomenon
  3. CARBIDOPA\LEVODOPA [Concomitant]
     Active Substance: CARBIDOPA\LEVODOPA
     Indication: Product used for unknown indication
     Dosage: UNK, DECREASED
     Route: 065
  4. CARBIDOPA\LEVODOPA [Concomitant]
     Active Substance: CARBIDOPA\LEVODOPA
     Dosage: 25/100 MG
     Route: 065
  5. KLONOPIN [Concomitant]
     Active Substance: CLONAZEPAM
     Indication: Product used for unknown indication
     Dosage: 0.5 MILLIGRAM
     Route: 065
  6. LEXAPRO [Concomitant]
     Active Substance: ESCITALOPRAM OXALATE
     Indication: Product used for unknown indication
     Dosage: 5 MILLIGRAM
     Route: 065
  7. PRILOSEC [Concomitant]
     Active Substance: OMEPRAZOLE MAGNESIUM
     Indication: Product used for unknown indication
     Dosage: 20 MILLIGRAM
     Route: 065
  8. RESTASIS EMU [Concomitant]
     Indication: Product used for unknown indication
     Dosage: 0.05%
     Route: 065
  9. RYTARY [Concomitant]
     Active Substance: CARBIDOPA\LEVODOPA
     Indication: Product used for unknown indication
     Dosage: 95 MILLIGRAM
     Route: 065

REACTIONS (8)
  - Condition aggravated [Unknown]
  - Therapeutic product effect variable [Unknown]
  - Eye swelling [Not Recovered/Not Resolved]
  - Device issue [Unknown]
  - Device use issue [Unknown]
  - Product residue present [Unknown]
  - Wrong technique in product usage process [Unknown]
  - Cough [Not Recovered/Not Resolved]
